FAERS Safety Report 9801647 (Version 2)
Quarter: 2014Q1

REPORT INFORMATION
  Report Type: Report from Study
  Country: NL (occurrence: NL)
  Receive Date: 20140107
  Receipt Date: 20140107
  Transmission Date: 20141002
  Serious: Yes (Life-Threatening, Other)
  Sender: FDA-Public Use
  Company Number: NL-BRISTOL-MYERS SQUIBB COMPANY-16899742

PATIENT
  Age: 39 Year
  Sex: Male

DRUGS (2)
  1. IPILIMUMAB [Suspect]
     Indication: MALIGNANT MELANOMA
     Dosage: INTERRUPTED ON 10JUN2012?TOTAL: 10000 MG
     Route: 042
     Dates: start: 20110926, end: 20120610
  2. PARACETAMOL [Concomitant]
     Indication: HEADACHE
     Dates: start: 20110926

REACTIONS (1)
  - Interstitial lung disease [Recovered/Resolved]
